FAERS Safety Report 5413999-1 (Version None)
Quarter: 2007Q3

REPORT INFORMATION
  Report Type: 
  Country: None (occurrence: None)
  Receive Date: 20070814
  Receipt Date: 20070802
  Transmission Date: 20080115
  Serious: Yes (Death)
  Sender: FDA-Public Use
  Company Number: JP-SANOFI-SYNTHELABO-A01200708803

PATIENT
  Age: 60 Year
  Sex: Male

DRUGS (3)
  1. FLUOROURACIL [Suspect]
     Route: 041
     Dates: start: 20050822, end: 20050822
  2. LEUCOVORIN CALCIUM [Suspect]
     Route: 041
     Dates: start: 20050822, end: 20050822
  3. OXALIPLATIN [Suspect]
     Route: 041
     Dates: start: 20050822, end: 20050822

REACTIONS (1)
  - CEREBRAL HAEMORRHAGE [None]
